FAERS Safety Report 13505009 (Version 1)
Quarter: 2017Q2

REPORT INFORMATION
  Report Type: Spontaneous
  Country: US (occurrence: US)
  Receive Date: 20170502
  Receipt Date: 20170502
  Transmission Date: 20170830
  Serious: No
  Sender: FDA-Public Use
  Company Number: US-ASTRAZENECA-2017SE42482

PATIENT
  Age: 67 Year
  Sex: Male
  Weight: 83.9 kg

DRUGS (5)
  1. CRESTOR [Suspect]
     Active Substance: ROSUVASTATIN CALCIUM
     Indication: BLOOD CHOLESTEROL INCREASED
     Dosage: 10 MG CUT IN HALF, TAKING 5 MG DAILY
     Route: 048
     Dates: start: 2010, end: 201702
  2. CRESTOR [Suspect]
     Active Substance: ROSUVASTATIN CALCIUM
     Indication: BLOOD TRIGLYCERIDES INCREASED
     Dosage: ROSUVASTATIN CALCIUM 10 MG CUT IN HALF, TAKING 5 MG DAILY
     Route: 048
     Dates: start: 201702
  3. CRESTOR [Suspect]
     Active Substance: ROSUVASTATIN CALCIUM
     Indication: BLOOD TRIGLYCERIDES INCREASED
     Dosage: 10 MG CUT IN HALF, TAKING 5 MG DAILY
     Route: 048
     Dates: start: 2010, end: 201702
  4. CRESTOR [Suspect]
     Active Substance: ROSUVASTATIN CALCIUM
     Indication: BLOOD CHOLESTEROL INCREASED
     Dosage: ROSUVASTATIN CALCIUM 10 MG CUT IN HALF, TAKING 5 MG DAILY
     Route: 048
     Dates: start: 201702
  5. METOPROLOL TARTRATE. [Suspect]
     Active Substance: METOPROLOL TARTRATE
     Indication: HYPERTENSION
     Route: 048
     Dates: start: 1978

REACTIONS (3)
  - Headache [Unknown]
  - High density lipoprotein decreased [Unknown]
  - Off label use [Unknown]

NARRATIVE: CASE EVENT DATE: 2010
